FAERS Safety Report 10399320 (Version 1)
Quarter: 2014Q3

REPORT INFORMATION
  Report Type: Spontaneous
  Country: US (occurrence: US)
  Receive Date: 20140821
  Receipt Date: 20140821
  Transmission Date: 20150326
  Serious: Yes (Other)
  Sender: FDA-Public Use
  Company Number: US-BAYER-2014-120254

PATIENT
  Age: 66 Year
  Sex: Male
  Weight: 97.51 kg

DRUGS (4)
  1. BAYER ADVANCED ASPIRIN EXTRA STRENGTH [Suspect]
     Active Substance: ASPIRIN
     Indication: ARTHRITIS
     Dosage: UNK
     Route: 048
  2. DIOVAN [Concomitant]
     Active Substance: VALSARTAN
  3. CELEXA [Concomitant]
     Active Substance: CITALOPRAM HYDROBROMIDE
  4. WELLBUTRIN [Concomitant]
     Active Substance: BUPROPION HYDROCHLORIDE

REACTIONS (6)
  - Tongue injury [Not Recovered/Not Resolved]
  - Expired product administered [None]
  - Glossodynia [Not Recovered/Not Resolved]
  - Tongue eruption [Not Recovered/Not Resolved]
  - Infective glossitis [Not Recovered/Not Resolved]
  - Intentional product misuse [None]

NARRATIVE: CASE EVENT DATE: 201408
